FAERS Safety Report 5580457-3 (Version None)
Quarter: 2008Q1

REPORT INFORMATION
  Report Type: 
  Country: None (occurrence: None)
  Receive Date: 20080103
  Receipt Date: 20071222
  Transmission Date: 20080703
  Serious: Yes (Death, Other)
  Sender: FDA-Public Use
  Company Number: TR-ELI_LILLY_AND_COMPANY-TR200712004656

PATIENT
  Age: 62 Year
  Sex: Male

DRUGS (2)
  1. HUMALOG [Suspect]
     Dosage: 3 UNITS/MORNING, NOON AND EVENING
     Route: 058
     Dates: start: 20070801, end: 20071001
  2. LANTUS [Concomitant]
     Dosage: 3 UNITS AT NIGHT
     Route: 058
     Dates: start: 20070801, end: 20071001

REACTIONS (4)
  - BLOOD DISORDER [None]
  - LIVER TRANSPLANT [None]
  - POISONING [None]
  - SEPSIS [None]
